FAERS Safety Report 6195507-3 (Version None)
Quarter: 2009Q2

REPORT INFORMATION
  Report Type: 
  Country: None (occurrence: None)
  Receive Date: 20090519
  Receipt Date: 20090507
  Transmission Date: 20091009
  Serious: Yes (Other)
  Sender: FDA-Public Use
  Company Number: JP-PFIZER INC-2009210143

PATIENT
  Age: 7 Day

DRUGS (3)
  1. SOLU-CORTEF [Suspect]
  2. INSULIN [Suspect]
  3. AMINO ACIDS [Concomitant]

REACTIONS (1)
  - HYPERTROPHIC CARDIOMYOPATHY [None]
